FAERS Safety Report 4945926-5 (Version None)
Quarter: 2006Q1

REPORT INFORMATION
  Report Type: 
  Country: None (occurrence: None)
  Receive Date: 20060316
  Receipt Date: 20051207
  Transmission Date: 20060701
  Serious: Yes (Life-Threatening, Disabling, Other)
  Sender: FDA-Public Use
  Company Number: DE-BOEHRINGER INGELHEIM PHARMACEUTICALS, INC.-2005-DE-05396DE

PATIENT
  Sex: Male
  Weight: 86 kg

DRUGS (9)
  1. MOBIC [Suspect]
     Indication: RHEUMATOID ARTHRITIS
     Route: 048
     Dates: start: 19970101, end: 20050101
  2. DICLO-PUREN [Concomitant]
     Indication: RHEUMATOID ARTHRITIS
     Route: 048
     Dates: start: 19940101, end: 19970101
  3. PIROXICAM [Concomitant]
     Indication: RHEUMATOID ARTHRITIS
     Route: 048
     Dates: start: 19920101, end: 19940101
  4. DILTIAZEM [Concomitant]
     Dosage: 2 X 1
  5. ENABETA [Concomitant]
     Dosage: 2 X 1
  6. ASPIRIN [Concomitant]
     Dosage: 1X 1
  7. NOVO RATIONPHARM [Concomitant]
     Dosage: 1 X 1
  8. PREDNISOLONE [Concomitant]
     Dosage: 1 X 1
  9. ESIDRIX [Concomitant]
     Dosage: 1 X 1

REACTIONS (36)
  - ABNORMAL FAECES [None]
  - ANOREXIA [None]
  - BLOOD CREATININE INCREASED [None]
  - BRONCHOPNEUMONIA [None]
  - CARDIOVASCULAR DISORDER [None]
  - CHEST DISCOMFORT [None]
  - CORONARY ARTERY DISEASE [None]
  - COUGH [None]
  - DEPRESSION [None]
  - DERMATITIS [None]
  - DIZZINESS [None]
  - DYSGEUSIA [None]
  - DYSPNOEA [None]
  - FLATULENCE [None]
  - GENERAL PHYSICAL HEALTH DETERIORATION [None]
  - GENERALISED OEDEMA [None]
  - HYPERCHOLESTEROLAEMIA [None]
  - HYPERHIDROSIS [None]
  - HYPERTENSION [None]
  - INSOMNIA [None]
  - MALAISE [None]
  - MENTAL DISORDER [None]
  - NAUSEA [None]
  - OBESITY [None]
  - OSTEOARTHRITIS [None]
  - PERIARTHRITIS [None]
  - PERIPHERAL ARTERIAL OCCLUSIVE DISEASE [None]
  - POLYNEUROPATHY [None]
  - PRODUCTIVE COUGH [None]
  - PRURITUS [None]
  - PYREXIA [None]
  - RENAL DISORDER [None]
  - RENAL FUNCTION TEST ABNORMAL [None]
  - RENAL IMPAIRMENT [None]
  - RHEUMATOID ARTHRITIS [None]
  - SPINAL OSTEOARTHRITIS [None]
